FAERS Safety Report 5156126-0 (Version None)
Quarter: 2006Q4

REPORT INFORMATION
  Report Type: 
  Country: None (occurrence: None)
  Receive Date: 20061122
  Receipt Date: 20061116
  Transmission Date: 20070319
  Serious: Yes (Other)
  Sender: FDA-Public Use
  Company Number: 2006UW24699

PATIENT
  Age: 72 Year
  Sex: Female
  Weight: 107 kg

DRUGS (10)
  1. CRESTOR [Suspect]
     Route: 048
     Dates: start: 20050101, end: 20060701
  2. HYDROCHLOROTHIAZIDE [Concomitant]
  3. PROBENECID [Concomitant]
     Indication: GOUT
  4. DETROL [Concomitant]
  5. ACIPHEX [Concomitant]
  6. ALLOPURINOL [Concomitant]
  7. CEPHALEXIN [Concomitant]
     Indication: CYSTITIS
  8. BENICAR [Concomitant]
  9. HYDROXYZINE [Concomitant]
  10. DARVOCET [Concomitant]
     Indication: ARTHRITIS

REACTIONS (4)
  - BACK PAIN [None]
  - RENAL CYST [None]
  - RENAL IMPAIRMENT [None]
  - URINARY TRACT INFECTION [None]
